FAERS Safety Report 26203321 (Version 1)
Quarter: 2025Q4

REPORT INFORMATION
  Report Type: Spontaneous
  Country: US (occurrence: None)
  Receive Date: 20251223
  Receipt Date: 20251223
  Transmission Date: 20260118
  Serious: Yes (Other)
  Sender: FDA-CTU
  Company Number: None

PATIENT
  Age: 36 Year
  Sex: Female
  Weight: 76.5 kg

DRUGS (2)
  1. CEPHALEXIN [Suspect]
     Active Substance: CEPHALEXIN
     Indication: Infection prophylaxis
     Dosage: FREQUENCY : EVERY 12 HOURS;
     Route: 048
  2. CEPHALEXIN [Suspect]
     Active Substance: CEPHALEXIN
     Indication: Urticaria

REACTIONS (4)
  - Heavy menstrual bleeding [None]
  - Fatigue [None]
  - Dizziness [None]
  - Impaired quality of life [None]

NARRATIVE: CASE EVENT DATE: 20251223
